FAERS Safety Report 11453579 (Version 1)
Quarter: 2015Q3

REPORT INFORMATION
  Report Type: Spontaneous
  Country: US (occurrence: US)
  Receive Date: 20150831
  Receipt Date: 20150831
  Transmission Date: 20151125
  Serious: No
  Sender: FDA-Public Use
  Company Number: US-ELI_LILLY_AND_COMPANY-US200912002060

PATIENT

DRUGS (1)
  1. CYMBALTA [Suspect]
     Active Substance: DULOXETINE HYDROCHLORIDE
     Indication: MAJOR DEPRESSION

REACTIONS (15)
  - Drug ineffective [Unknown]
  - Fatigue [Unknown]
  - Partner stress [Unknown]
  - Loss of libido [Unknown]
  - Abulia [Unknown]
  - Social avoidant behaviour [Unknown]
  - Neglect of personal appearance [Unknown]
  - Activities of daily living impaired [Unknown]
  - Apathy [Unknown]
  - Sleep disorder [Unknown]
  - Anorgasmia [Unknown]
  - Disturbance in attention [Unknown]
  - Affect lability [Unknown]
  - Weight increased [Unknown]
  - Mental impairment [Unknown]
